FAERS Safety Report 24180363 (Version 1)
Quarter: 2024Q3

REPORT INFORMATION
  Report Type: Spontaneous
  Country: US (occurrence: None)
  Receive Date: 20240805
  Receipt Date: 20240805
  Transmission Date: 20241017
  Serious: Yes (Other)
  Sender: Public
  Company Number: None

PATIENT
  Age: 40 Year
  Sex: Male
  Weight: 74.79 kg

DRUGS (1)
  1. REMICADE [Suspect]
     Active Substance: INFLIXIMAB
     Indication: Crohn^s disease
     Dosage: OTHER FREQUENCY : EVERY 8 WEEKS;?
     Route: 041

REACTIONS (11)
  - Injection site pruritus [None]
  - Erythema [None]
  - Scratch [None]
  - Urticaria [None]
  - Infusion related reaction [None]
  - Chest discomfort [None]
  - Throat tightness [None]
  - Dizziness [None]
  - Muscle tightness [None]
  - Anxiety [None]
  - Dry mouth [None]

NARRATIVE: CASE EVENT DATE: 20240802
